FAERS Safety Report 18748877 (Version 1)
Quarter: 2021Q1

REPORT INFORMATION
  Report Type: Report from Study
  Country: None (occurrence: CA)
  Receive Date: 20210116
  Receipt Date: 20210116
  Transmission Date: 20210419
  Serious: Yes (Other)
  Sender: FDA-Public Use
  Company Number: CA-ABBVIE-20K-028-3645495-00

PATIENT
  Age: 70 Year
  Sex: Male

DRUGS (1)
  1. RINVOQ [Suspect]
     Active Substance: UPADACITINIB
     Indication: RHEUMATOID ARTHRITIS
     Route: 048
     Dates: start: 20200603

REACTIONS (4)
  - Dizziness [Unknown]
  - Prostatic specific antigen abnormal [Unknown]
  - Rash macular [Unknown]
  - Rash macular [Unknown]

NARRATIVE: CASE EVENT DATE: 202006
